FAERS Safety Report 23461672 (Version 4)
Quarter: 2024Q1

REPORT INFORMATION
  Report Type: Report from Study
  Country: US (occurrence: US)
  Receive Date: 20240131
  Receipt Date: 20240321
  Transmission Date: 20240410
  Serious: No
  Sender: FDA-Public Use
  Company Number: US-BIOVITRUM-2023-US-021328

PATIENT
  Age: 76 Year
  Sex: Female

DRUGS (1)
  1. KINERET [Suspect]
     Active Substance: ANAKINRA
     Indication: Product used for unknown indication
     Dosage: 100 MG ONCE DAILY
     Route: 058

REACTIONS (4)
  - Drug ineffective [Unknown]
  - Pain [Unknown]
  - Injection site discolouration [Unknown]
  - Injection site rash [Unknown]
